FAERS Safety Report 17630661 (Version 1)
Quarter: 2020Q2

REPORT INFORMATION
  Report Type: Spontaneous
  Country: US (occurrence: US)
  Receive Date: 20200403
  Receipt Date: 20200403
  Transmission Date: 20200713
  Serious: No
  Sender: FDA-Public Use
  Company Number: None

PATIENT
  Sex: Female

DRUGS (6)
  1. MONTELUKAST [Concomitant]
     Active Substance: MONTELUKAST SODIUM
  2. OCALIVA [Suspect]
     Active Substance: OBETICHOLIC ACID
     Indication: PRIMARY BILIARY CHOLANGITIS
     Route: 048
     Dates: start: 20180920
  3. DESVENLAFAX [Concomitant]
  4. LEVOCETIRIZI [Concomitant]
  5. URSODIOL. [Concomitant]
     Active Substance: URSODIOL
  6. EZETIM/SIMVA [Concomitant]

REACTIONS (1)
  - Fatigue [None]
